FAERS Safety Report 4945240-8 (Version None)
Quarter: 2006Q1

REPORT INFORMATION
  Report Type: 
  Country: None (occurrence: None)
  Receive Date: 20060118
  Receipt Date: 20041129
  Transmission Date: 20060701
  Serious: Yes (Other)
  Sender: FDA-Public Use
  Company Number: US-JNJFOC-20041100701

PATIENT
  Age: 43 Year
  Sex: Female
  Weight: 90.2658 kg

DRUGS (14)
  1. DOXIL [Suspect]
     Indication: BREAST CANCER
     Dosage: 80 MG, INTRAVENOUS ; 101 MG, INTRAVENOUS
     Route: 042
     Dates: end: 20041008
  2. DOXIL [Suspect]
     Indication: BREAST CANCER
     Dosage: 80 MG, INTRAVENOUS ; 101 MG, INTRAVENOUS
     Route: 042
     Dates: start: 20040827
  3. NEURONTIN [Concomitant]
  4. MULTIVITAMIN [Concomitant]
  5. CALTRATE (CALCIUM CARBONATE) [Concomitant]
  6. OXYCONTIN [Concomitant]
  7. VITAMIN B6 [Concomitant]
  8. VITAMIN B12 [Concomitant]
  9. VITAMIN E [Concomitant]
  10. FOSAMAX [Concomitant]
  11. PHENERGAN (PROMETHAZINE HYDROCHLORIDE) [Concomitant]
  12. HYDROCODONE BITARTRATE [Concomitant]
  13. DIFLUCAN [Concomitant]
  14. TAGAMET [Concomitant]

REACTIONS (3)
  - ERYTHEMA [None]
  - EXFOLIATIVE RASH [None]
  - PRURITUS [None]
